FAERS Safety Report 19187537 (Version 3)
Quarter: 2021Q2

REPORT INFORMATION
  Report Type: Spontaneous
  Country: JP (occurrence: JP)
  Receive Date: 20210427
  Receipt Date: 20210629
  Transmission Date: 20210717
  Serious: Yes (Hospitalization, Other)
  Sender: FDA-Public Use
  Company Number: JP-ABBVIE-17K-087-2009155-00

PATIENT
  Age: 80 Year
  Sex: Female

DRUGS (2)
  1. DUODOPA [Suspect]
     Active Substance: CARBIDOPA\LEVODOPA
     Indication: PARKINSON^S DISEASE
     Route: 050
     Dates: start: 20170519, end: 20170525
  2. DUODOPA [Suspect]
     Active Substance: CARBIDOPA\LEVODOPA
     Route: 050
     Dates: start: 20170525

REACTIONS (14)
  - Device occlusion [Unknown]
  - Device use issue [Unknown]
  - Chest discomfort [Recovered/Resolved]
  - Illness anxiety disorder [Unknown]
  - Dyspnoea [Unknown]
  - Drug ineffective [Unknown]
  - On and off phenomenon [Unknown]
  - Drooling [Recovered/Resolved]
  - Off label use [Unknown]
  - Coma [Unknown]
  - Malaise [Recovered/Resolved]
  - Decubitus ulcer [Unknown]
  - Malaise [Unknown]
  - Musculoskeletal stiffness [Unknown]

NARRATIVE: CASE EVENT DATE: 2017
